FAERS Safety Report 8968888 (Version 1)
Quarter: 2012Q4

REPORT INFORMATION
  Report Type: 
  Country: DE (occurrence: DE)
  Receive Date: 20121217
  Receipt Date: 20121217
  Transmission Date: 20130627
  Serious: Yes (Hospitalization, Other)
  Sender: FDA-Public Use
  Company Number: DE-MYLANLABS-2012S1024936

PATIENT
  Age: 37 Year
  Sex: Male
  Weight: 100 kg

DRUGS (1)
  1. CITALOPRAM [Suspect]
     Indication: BURNOUT SYNDROME
     Dosage: 20mg
     Route: 048
     Dates: start: 20101001, end: 20101115

REACTIONS (8)
  - Dizziness [Unknown]
  - Visual impairment [Unknown]
  - Disturbance in attention [Unknown]
  - Hypoaesthesia [Unknown]
  - Sleep disorder [Unknown]
  - Eyelid function disorder [Recovered/Resolved]
  - Fatigue [Unknown]
  - General physical health deterioration [Unknown]
